FAERS Safety Report 9577801 (Version 1)
Quarter: 2013Q4

REPORT INFORMATION
  Report Type: Spontaneous
  Country: US (occurrence: US)
  Receive Date: 20131001
  Receipt Date: 20131001
  Transmission Date: 20140711
  Serious: No
  Sender: FDA-Public Use
  Company Number: US-AMGEN-USASP2013009823

PATIENT
  Age: 58 Year
  Sex: Female
  Weight: 83.45 kg

DRUGS (9)
  1. ENBREL [Suspect]
     Indication: RHEUMATOID ARTHRITIS
     Dosage: 50 MG, QWK
     Route: 058
  2. METHOTREXATE [Concomitant]
     Dosage: 2.5 MG, UNK
  3. ESTRATEST [Concomitant]
     Dosage: UNK
  4. NAPROXEN [Concomitant]
     Dosage: 250 MG, UNK
  5. METOPROLOL TARTRATE [Concomitant]
     Dosage: 25 MG, UNK
  6. VITAMIN D                          /00107901/ [Concomitant]
     Dosage: 400 UNIT, UNK
  7. ZINC [Concomitant]
     Dosage: 30 MG, UNK
  8. FOLIC ACID [Concomitant]
     Dosage: UNK
  9. BABY ASPIRIN [Concomitant]
     Dosage: 81 MG, UNK

REACTIONS (1)
  - Influenza [Recovered/Resolved]
